FAERS Safety Report 8063179-9 (Version None)
Quarter: 2012Q1

REPORT INFORMATION
  Report Type: 
  Country: None (occurrence: None)
  Receive Date: 20120123
  Receipt Date: 20120110
  Transmission Date: 20120608
  Serious: Yes (Hospitalization, Other)
  Sender: FDA-Public Use
  Company Number: PHHO2011US13897

PATIENT
  Sex: Female
  Weight: 105.6 kg

DRUGS (3)
  1. CERTICAN [Suspect]
     Indication: RENAL TRANSPLANT
     Dosage: 0.75 MG, BID
     Dates: start: 20110808
  2. TACROLIMUS [Concomitant]
     Indication: RENAL TRANSPLANT
  3. LOPRESSOR [Concomitant]
     Indication: BLOOD PRESSURE
     Dosage: 25 MG, BID
     Dates: start: 20110810

REACTIONS (2)
  - RESPIRATORY FAILURE [None]
  - PULMONARY EMBOLISM [None]
